FAERS Safety Report 10407575 (Version 2)
Quarter: 2014Q3

REPORT INFORMATION
  Report Type: Spontaneous
  Country: US (occurrence: US)
  Receive Date: 20140825
  Receipt Date: 20140825
  Transmission Date: 20150326
  Serious: No
  Sender: FDA-Public Use
  Company Number: US-BRACCO-010429

PATIENT
  Age: 11 Year
  Sex: Female

DRUGS (2)
  1. KINEVAC [Suspect]
     Active Substance: SINCALIDE
     Indication: HEPATOBILIARY SCAN
     Dosage: 0.02 MCG/KG OF PATIENT WEIGHT, INFUSED AT 1 ML PER MINUTE OVER 10 MINUTES IN SALINE
     Route: 042
     Dates: start: 20130920, end: 20130920
  2. CHOLETEC [Concomitant]
     Active Substance: TECHNETIUM TC-99M MEBROFENIN
     Indication: HEPATOBILIARY SCAN
     Dates: start: 20130920, end: 20130920

REACTIONS (2)
  - Drug effect decreased [Unknown]
  - Multiple use of single-use product [Unknown]

NARRATIVE: CASE EVENT DATE: 20130920
